FAERS Safety Report 5385121-1 (Version None)
Quarter: 2007Q3

REPORT INFORMATION
  Report Type: 
  Country: None (occurrence: None)
  Receive Date: 20070709
  Receipt Date: 20070705
  Transmission Date: 20080115
  Serious: Yes (Other)
  Sender: FDA-Public Use
  Company Number: 2007SP013376

PATIENT
  Sex: Female

DRUGS (6)
  1. NASONEX [Suspect]
     Indication: SINUSITIS
     Dosage: QD; NAS
     Route: 045
     Dates: start: 20070414
  2. AMOXICILLIN [Concomitant]
  3. PARIET [Concomitant]
  4. ALENDRONATE SODIUM [Concomitant]
  5. SYNTHROID [Concomitant]
  6. RAMIPRIL [Concomitant]

REACTIONS (2)
  - AGEUSIA [None]
  - ANOSMIA [None]
